FAERS Safety Report 21627004 (Version 1)
Quarter: 2022Q4

REPORT INFORMATION
  Report Type: Report from Study
  Country: US (occurrence: US)
  Receive Date: 20221122
  Receipt Date: 20221122
  Transmission Date: 20230113
  Serious: No
  Sender: FDA-Public Use
  Company Number: US-ABBVIE-22K-163-4392750-00

PATIENT
  Age: 60 Year
  Sex: Male

DRUGS (3)
  1. SKYRIZI [Suspect]
     Active Substance: RISANKIZUMAB-RZAA
     Indication: Psoriasis
     Dosage: WEEK 0, FORM STRENGTH 150 MILLIGRAM
     Route: 058
     Dates: start: 202204, end: 202204
  2. SKYRIZI [Suspect]
     Active Substance: RISANKIZUMAB-RZAA
     Dosage: TIME INTERVAL: 1 TOTAL: WEEK 4, FORM STRENGTH 150 MILLIGRAM
     Route: 058
     Dates: start: 202204, end: 202205
  3. TYLENOL [Concomitant]
     Active Substance: ACETAMINOPHEN
     Indication: Product used for unknown indication

REACTIONS (8)
  - Dry skin [Recovering/Resolving]
  - Mobility decreased [Unknown]
  - Sinus congestion [Recovering/Resolving]
  - Skin discolouration [Recovering/Resolving]
  - Dry skin [Unknown]
  - Memory impairment [Recovered/Resolved]
  - Asthenia [Recovering/Resolving]
  - Therapeutic product effect prolonged [Unknown]

NARRATIVE: CASE EVENT DATE: 20220501
